FAERS Safety Report 4902490-4 (Version None)
Quarter: 2006Q1

REPORT INFORMATION
  Report Type: 
  Country: None (occurrence: None)
  Receive Date: 20060202
  Receipt Date: 20060122
  Transmission Date: 20060701
  Serious: Yes (Disabling)
  Sender: FDA-Public Use
  Company Number: HQWYE449523JAN06

PATIENT
  Age: 51 Year
  Sex: Female

DRUGS (2)
  1. NORGESTREL AND ETHINYL ESTRADIOL [Suspect]
     Indication: METRORRHAGIA
     Dosage: 1 TABLET 1X PER 1 DAY ORAL
     Route: 048
     Dates: start: 20051224, end: 20060108
  2. KEISHIBUKURYOUGAN (HERBAL EXTRACTS NOS), UNKNOWN [Concomitant]

REACTIONS (3)
  - BEHCET'S SYNDROME [None]
  - BLINDNESS UNILATERAL [None]
  - CONDITION AGGRAVATED [None]
